FAERS Safety Report 4801530-0 (Version None)
Quarter: 2005Q4

REPORT INFORMATION
  Report Type: 
  Country: None (occurrence: None)
  Receive Date: 20051011
  Receipt Date: 20040930
  Transmission Date: 20060501
  Serious: Yes (Life-Threatening, Hospitalization)
  Sender: FDA-Public Use
  Company Number: 2001048310US

PATIENT
  Age: 43 Year
  Sex: Female
  Weight: 62.1 kg

DRUGS (3)
  1. EPIRUBICIN [Suspect]
     Indication: BREAST CANCER FEMALE
     Dosage: 120 MG (CYCLIC, INTRAVENOUS
     Route: 042
     Dates: start: 20001120, end: 20010307
  2. PACLITAXEL [Suspect]
     Indication: BREAST CANCER FEMALE
     Dosage: 280 MG (CYCLIC), INTRAVENOUS
     Route: 042
     Dates: start: 20001120
  3. PROCRIT [Suspect]
     Indication: ANAEMIA
     Dosage: (4000 I.U., WK), SUBCUTANEOUS
     Route: 058
     Dates: start: 20001212, end: 20010307

REACTIONS (1)
  - MYOCARDIAL INFARCTION [None]
